FAERS Safety Report 11205567 (Version 5)
Quarter: 2015Q3

REPORT INFORMATION
  Report Type: Spontaneous
  Country: JP (occurrence: JP)
  Receive Date: 20150622
  Receipt Date: 20150930
  Transmission Date: 20151125
  Serious: Yes (Other)
  Sender: FDA-Public Use
  Company Number: JP-PFIZER INC-2015204051

PATIENT
  Age: 71 Year
  Sex: Female
  Weight: 39 kg

DRUGS (10)
  1. ATORVASTATIN [Concomitant]
     Active Substance: ATORVASTATIN
     Dosage: 5 MG, UNK
     Dates: start: 20140403
  2. DAIKENCHUTO [Concomitant]
     Active Substance: HERBALS
     Indication: ABDOMINAL DISCOMFORT
     Dosage: UNK
     Dates: start: 20140929
  3. BETANIS [Suspect]
     Active Substance: MIRABEGRON
     Indication: NOCTURIA
     Dosage: 50 MG, DAILY (AT BEDTIME)
     Route: 048
     Dates: start: 20140917, end: 20141001
  4. MYSLEE [Concomitant]
     Active Substance: ZOLPIDEM TARTRATE
     Dosage: 10 MG, UNK
     Dates: start: 20140628
  5. EPADEL-S [Concomitant]
     Active Substance: ETHYL ICOSAPENTATE\ICOSAPENT
     Dosage: 900 MG, UNK
     Dates: start: 20100802
  6. DAIKENCHUTO [Concomitant]
     Active Substance: HERBALS
     Indication: DECREASED APPETITE
  7. CEREKINON [Concomitant]
     Active Substance: TRIMEBUTINE
     Indication: ENTEROCOLITIS BACTERIAL
     Dosage: UNK
     Dates: start: 20140922
  8. CELECOX [Suspect]
     Active Substance: CELECOXIB
     Indication: TENOSYNOVITIS
     Dosage: UNK
     Route: 048
     Dates: start: 201409, end: 20140922
  9. BUFFERIN [Concomitant]
     Active Substance: ASPIRIN
     Dosage: 81 MG, UNK
     Dates: start: 20090824
  10. FOSMICIN /00552502/ [Concomitant]
     Indication: ENTEROCOLITIS BACTERIAL
     Dosage: UNK
     Dates: start: 20140922

REACTIONS (4)
  - Abdominal pain [Recovered/Resolved]
  - Ischaemic enteritis [Recovered/Resolved]
  - Decreased appetite [Recovered/Resolved]
  - Diarrhoea [Recovered/Resolved]

NARRATIVE: CASE EVENT DATE: 20140919
